FAERS Safety Report 16035251 (Version 1)
Quarter: 2019Q1

REPORT INFORMATION
  Report Type: Spontaneous
  Country: US (occurrence: US)
  Receive Date: 20190305
  Receipt Date: 20190305
  Transmission Date: 20190418
  Serious: No
  Sender: FDA-Public Use
  Company Number: US-SA-2019SA057666

PATIENT
  Age: 42 Year
  Sex: Female
  Weight: 105 kg

DRUGS (25)
  1. ESCITALOPRAM OXALATE. [Concomitant]
     Active Substance: ESCITALOPRAM OXALATE
  2. LOSARTAN POTASSIUM. [Concomitant]
     Active Substance: LOSARTAN POTASSIUM
  3. PROAIR HFA [Concomitant]
     Active Substance: ALBUTEROL SULFATE
  4. FLUCONAZOLE. [Concomitant]
     Active Substance: FLUCONAZOLE
  5. AZITHROMYCIN ANHYDROUS. [Concomitant]
     Active Substance: AZITHROMYCIN ANHYDROUS
  6. OMEPRAZOLE. [Concomitant]
     Active Substance: OMEPRAZOLE
  7. OXCARBAZEPINE. [Concomitant]
     Active Substance: OXCARBAZEPINE
  8. VERAPAMIL [Concomitant]
     Active Substance: VERAPAMIL HYDROCHLORIDE
  9. FASENRA [Concomitant]
     Active Substance: BENRALIZUMAB
  10. PREDNISONE. [Concomitant]
     Active Substance: PREDNISONE
  11. ELINEST [Concomitant]
     Active Substance: ETHINYL ESTRADIOL\NORGESTREL
  12. MAGNESIUM [Concomitant]
     Active Substance: MAGNESIUM
  13. MUPIROCIN. [Concomitant]
     Active Substance: MUPIROCIN
  14. CLOTRIMAZOLE. [Concomitant]
     Active Substance: CLOTRIMAZOLE
  15. DUPIXENT [Suspect]
     Active Substance: DUPILUMAB
     Indication: ASTHMA
     Dosage: 300 MG, QOW
     Route: 058
     Dates: start: 201812
  16. ONDANSETRON [Concomitant]
     Active Substance: ONDANSETRON
  17. LORAZEPAM. [Concomitant]
     Active Substance: LORAZEPAM
  18. SYMBICORT [Concomitant]
     Active Substance: BUDESONIDE\FORMOTEROL FUMARATE DIHYDRATE
  19. PRAZOSIN HCL [Concomitant]
     Active Substance: PRAZOSIN HYDROCHLORIDE
  20. PENNSAID [Concomitant]
     Active Substance: DICLOFENAC SODIUM
  21. CALCIUM CARBONATE. [Concomitant]
     Active Substance: CALCIUM CARBONATE
  22. MONTELUKAST SODIUM. [Concomitant]
     Active Substance: MONTELUKAST SODIUM
  23. BUPROPION. [Concomitant]
     Active Substance: BUPROPION
  24. NORTRIPTYLINE HYDROCHLORIDE. [Concomitant]
     Active Substance: NORTRIPTYLINE HYDROCHLORIDE
  25. EPINEPHRINE. [Concomitant]
     Active Substance: EPINEPHRINE
     Dosage: 0.3 MG

REACTIONS (1)
  - Injection site pain [Unknown]
